FAERS Safety Report 9368935 (Version 2)
Quarter: 2014Q2

REPORT INFORMATION
  Report Type: Spontaneous
  Country: NL (occurrence: NL)
  Receive Date: 20130626
  Receipt Date: 20140612
  Transmission Date: 20141212
  Serious: Yes (Other)
  Sender: FDA-Public Use
  Company Number: NL-AMGEN-NLDSP2013044296

PATIENT
  Age: 70 Year
  Sex: Female

DRUGS (1)
  1. PROLIA [Suspect]
     Indication: OSTEOPOROSIS
     Route: 065

REACTIONS (5)
  - Osteomyelitis [Unknown]
  - Osteonecrosis of jaw [Unknown]
  - Tooth extraction [Unknown]
  - Gastric disorder [Unknown]
  - Pain in jaw [Unknown]
